FAERS Safety Report 24834671 (Version 1)
Quarter: 2025Q1

REPORT INFORMATION
  Report Type: Spontaneous
  Country: GB (occurrence: GB)
  Receive Date: 20250113
  Receipt Date: 20250113
  Transmission Date: 20250409
  Serious: Yes (Other)
  Sender: AUROBINDO
  Company Number: GB-MHRA-TPP41277815C9462292YC1735546243699

PATIENT
  Age: 41 Year
  Sex: Female
  Weight: 58 kg

DRUGS (5)
  1. RIZATRIPTAN [Suspect]
     Active Substance: RIZATRIPTAN
     Indication: Product used for unknown indication
     Route: 065
     Dates: start: 20241224
  2. PROCHLORPERAZINE [Concomitant]
     Active Substance: PROCHLORPERAZINE
     Indication: Product used for unknown indication
     Route: 065
     Dates: start: 20241204
  3. SUMATRIPTAN [Concomitant]
     Active Substance: SUMATRIPTAN
     Indication: Product used for unknown indication
     Route: 065
     Dates: start: 20241204
  4. NARATRIPTAN [Concomitant]
     Active Substance: NARATRIPTAN HYDROCHLORIDE
     Indication: Product used for unknown indication
     Route: 065
     Dates: start: 20241210
  5. COCODAMOL [Concomitant]
     Active Substance: ACETAMINOPHEN\CODEINE PHOSPHATE
     Indication: Product used for unknown indication
     Route: 065
     Dates: start: 20241224

REACTIONS (1)
  - Seizure like phenomena [Recovered/Resolved]
